FAERS Safety Report 8419140-5 (Version None)
Quarter: 2012Q2

REPORT INFORMATION
  Report Type: 
  Country: None (occurrence: None)
  Receive Date: 20120607
  Receipt Date: 20120602
  Transmission Date: 20120825
  Serious: Yes (Other)
  Sender: FDA-Public Use
  Company Number: US-AMGEN-USASP2012021907

PATIENT
  Age: 63 Year
  Sex: Female
  Weight: 85.261 kg

DRUGS (7)
  1. B6 [Concomitant]
     Dosage: 1 UNK, UNK
  2. LIPITOR [Concomitant]
     Indication: HYPERLIPIDAEMIA
     Dosage: 20 MG, QD
     Route: 048
  3. VITAMIN D [Concomitant]
     Indication: VITAMIN D DEFICIENCY
     Dosage: UNK UNK, QD
     Dates: start: 20100101
  4. CALCIUM [Concomitant]
     Dosage: UNK
  5. PROLIA [Suspect]
     Indication: OSTEOPOROSIS
     Dosage: 60 MG, ONE TIME DOSE
     Route: 058
     Dates: start: 20120322, end: 20120322
  6. DOXYCYCLINE [Concomitant]
     Indication: BRONCHITIS
     Dosage: 100 MG, BID
     Route: 048
     Dates: start: 20120313, end: 20120323
  7. PREDNISONE [Concomitant]
     Indication: BRONCHITIS
     Dosage: 10 MG, UNK
     Dates: start: 20120313, end: 20120322

REACTIONS (11)
  - FEELING ABNORMAL [None]
  - FATIGUE [None]
  - PARAESTHESIA [None]
  - DRUG HYPERSENSITIVITY [None]
  - PARAESTHESIA ORAL [None]
  - NAUSEA [None]
  - SWOLLEN TONGUE [None]
  - BURNING SENSATION [None]
  - INFLUENZA LIKE ILLNESS [None]
  - FEELING HOT [None]
  - VOMITING [None]
